FAERS Safety Report 4638488-3 (Version None)
Quarter: 2005Q2

REPORT INFORMATION
  Report Type: 
  Country: None (occurrence: None)
  Receive Date: 20050418
  Receipt Date: 20050405
  Transmission Date: 20051028
  Serious: Yes (Death, Hospitalization)
  Sender: FDA-Public Use
  Company Number: 2005044569

PATIENT
  Age: 62 Year
  Sex: Male
  Weight: 70 kg

DRUGS (8)
  1. LINEZOLID SOLUTION, STERILE (LINEZOLID) [Suspect]
     Indication: STAPHYLOCOCCAL INFECTION
     Dosage: 1200 MG (600 MG, 2 IN 1 D), INTRAVENOUS
     Route: 042
     Dates: start: 20050208, end: 20050216
  2. TOBRAMYCIN [Concomitant]
  3. NADROPARIN (NADROPARIN) [Concomitant]
  4. PHYTONADIONE [Concomitant]
  5. METHYLPREDNISOLONE [Concomitant]
  6. ACETAMINOPHEN [Concomitant]
  7. KETAMINE HCL [Concomitant]
  8. FENTANYL [Concomitant]

REACTIONS (6)
  - DISEASE PROGRESSION [None]
  - MULTI-ORGAN FAILURE [None]
  - PANCYTOPENIA [None]
  - PNEUMONIA [None]
  - SEPTIC SHOCK [None]
  - SERRATIA INFECTION [None]
